FAERS Safety Report 20069947 (Version 2)
Quarter: 2022Q1

REPORT INFORMATION
  Report Type: Report from Study
  Country: IT (occurrence: IT)
  Receive Date: 20211115
  Receipt Date: 20220112
  Transmission Date: 20220423
  Serious: Yes (Hospitalization, Other)
  Sender: FDA-Public Use
  Company Number: IT-UCBSA-2021053106

PATIENT
  Sex: Male

DRUGS (1)
  1. ROTIGOTINE [Suspect]
     Active Substance: ROTIGOTINE
     Indication: Parkinson^s disease
     Dosage: 4 MILLIGRAM, ONCE DAILY (QD)

REACTIONS (7)
  - Parkinson^s disease [Unknown]
  - Dementia Alzheimer^s type [Unknown]
  - Cardiac disorder [Unknown]
  - Intestinal obstruction [Unknown]
  - Aphasia [Unknown]
  - Weight decreased [Unknown]
  - Coordination abnormal [Unknown]

NARRATIVE: CASE EVENT DATE: 20200101
